FAERS Safety Report 8782831 (Version 1)
Quarter: 2012Q4

REPORT INFORMATION
  Report Type: 
  Country: AU (occurrence: AU)
  Receive Date: 20120913
  Receipt Date: 20120913
  Transmission Date: 20130627
  Serious: Yes (Other)
  Sender: FDA-Public Use
  Company Number: AU-GLAXOSMITHKLINE-B0824687A

PATIENT
  Age: 50 Year
  Sex: Male

DRUGS (1)
  1. SERETIDE ACCUHALER [Suspect]
     Indication: ASTHMA
     Route: 065

REACTIONS (2)
  - Asthma [Unknown]
  - Product quality issue [Unknown]
